FAERS Safety Report 5381121-6 (Version None)
Quarter: 2007Q3

REPORT INFORMATION
  Report Type: 
  Country: None (occurrence: None)
  Receive Date: 20070706
  Receipt Date: 20070629
  Transmission Date: 20080115
  Serious: Yes (Hospitalization)
  Sender: FDA-Public Use
  Company Number: DE-SHR-DE-2007-020753

PATIENT
  Age: 75 Year
  Sex: Male
  Weight: 60 kg

DRUGS (29)
  1. MAGNEVIST [Suspect]
     Dosage: UNK, 1 DOSE
     Dates: start: 20040803, end: 20040803
  2. MAGNEVIST [Suspect]
     Dosage: UNK, 1 DOSE
     Dates: start: 20041202, end: 20041202
  3. MAGNEVIST [Suspect]
     Dosage: UNK, 1 DOSE
     Dates: start: 20050525, end: 20050525
  4. MAGNEVIST [Suspect]
     Dosage: 40 ML, 1 DOSE
     Route: 042
     Dates: start: 20060309, end: 20060309
  5. MAGNEVIST [Suspect]
     Dosage: 40 ML, 1 DOSE
     Route: 042
     Dates: start: 20060518, end: 20060518
  6. MAGNEVIST [Suspect]
     Dosage: 170 ML, 1 DOSE
     Dates: start: 20050824, end: 20050824
  7. NORVASC [Concomitant]
     Dosage: 5 MG, 2X/DAY
     Route: 048
  8. CLONIDINE [Concomitant]
     Dosage: 250 MG, 1X/DAY
     Route: 048
  9. MOXONIDINE [Concomitant]
     Dosage: .3 MG, ON NOT DIALYSIS DAY
  10. PANTOZOL [Concomitant]
     Dosage: 40 MG, 1X/DAY
     Route: 048
  11. NOVONORM [Concomitant]
     Dosage: 2 MG, 3X/DAY
     Route: 048
  12. DIOVAN [Concomitant]
     Dosage: 160 MG, 1X/DAY
     Route: 048
  13. ANTI-PHOSPHAT [Concomitant]
     Dosage: 2 TAB(S), 3X/DAY
     Route: 048
  14. EINSALPHA [Concomitant]
     Dosage: .5 A?G, 1X/DAY
     Route: 048
  15. TOREM                                   /GFR/ [Concomitant]
     Dosage: 100 MG, 2X/DAY
     Route: 048
  16. LOCOL [Concomitant]
     Dosage: 80 MG, 1X/DAY
     Route: 048
  17. PLAVIX [Concomitant]
     Dosage: 75 MG, 1X/DAY
  18. NEURONTIN [Concomitant]
     Dosage: 100 MG, 3X/DAY
  19. NEURONTIN [Concomitant]
     Dosage: 300 MG, AFTER HEAMODIALYSIS
  20. MOVICOL [Concomitant]
     Dosage: UNK, 1X/DAY
  21. NEO RECORMON [Concomitant]
     Dosage: 3000 IU, ON HAEMODIAL. DAYS
     Route: 058
  22. FERLECIT [Concomitant]
     Dosage: 2X/WEEK, ON HAEMODIAL. DAYS
  23. CALCIPARINE [Concomitant]
     Dosage: 5000 IU, 2X/DAY
     Route: 058
  24. EBRANTIL [Concomitant]
     Dosage: 60 MG, 2X/DAY
     Route: 048
  25. AQUAPHOR [Concomitant]
     Dosage: 40 MG/D, UNK
  26. MARCUMAR [Concomitant]
     Dosage: ACCORDING SCHEDULE
     Route: 048
  27. ZOPLICONE [Concomitant]
     Dosage: 7.5 MG, BED T.
     Route: 048
  28. TILIDIN ^RATIOPHARM^ [Concomitant]
     Dosage: 1 TAB(S), 2X/DAY
     Route: 048
  29. ISCOVER [Concomitant]
     Dosage: 75 MG/D, UNK
     Route: 048

REACTIONS (7)
  - ASTHENIA [None]
  - CATHETER THROMBOSIS [None]
  - GENERAL PHYSICAL HEALTH DETERIORATION [None]
  - NEPHROGENIC SYSTEMIC FIBROSIS [None]
  - SCLERODERMA [None]
  - STAPHYLOCOCCAL SEPSIS [None]
  - URINARY TRACT INFECTION [None]
